FAERS Safety Report 12245368 (Version 1)
Quarter: 2016Q2

REPORT INFORMATION
  Report Type: Spontaneous
  Country: US (occurrence: None)
  Receive Date: 20160406
  Receipt Date: 20160406
  Transmission Date: 20160815
  Serious: Yes (Hospitalization)
  Sender: FDA-Public Use
  Company Number: None

PATIENT
  Age: 56 Year
  Sex: Female
  Weight: 46.4 kg

DRUGS (6)
  1. SCOPOLAMINE TRANSDERMAL PATCH [Concomitant]
     Active Substance: SCOPOLAMINE
  2. REGORAFENIB [Suspect]
     Active Substance: REGORAFENIB
     Indication: COLON CANCER METASTATIC
     Route: 048
     Dates: start: 20160223, end: 20160321
  3. CLOBETASOL SD [Suspect]
     Active Substance: CLOBETASOL
     Indication: PRODUCT USED FOR UNKNOWN INDICATION
     Dosage: TWICE A DAY TOPICALLY WHEN PRES.
     Route: 061
  4. XANAX [Concomitant]
     Active Substance: ALPRAZOLAM
  5. FENTANYL TRANSDERMAL SYSTEM [Concomitant]
     Active Substance: FENTANYL
  6. OXYCODONE-ACETAMINOPHEN [Concomitant]
     Active Substance: ACETAMINOPHEN\OXYCODONE HYDROCHLORIDE

REACTIONS (4)
  - Hospice care [None]
  - Benign neoplasm [None]
  - Pleural effusion [None]
  - Neoplasm malignant [None]

NARRATIVE: CASE EVENT DATE: 20160401
